FAERS Safety Report 16194418 (Version 1)
Quarter: 2019Q2

REPORT INFORMATION
  Report Type: Spontaneous
  Country: GB (occurrence: GB)
  Receive Date: 20190414
  Receipt Date: 20190414
  Transmission Date: 20190711
  Serious: Yes (Death)
  Sender: FDA-Public Use
  Company Number: GB-TEVA-2019-GB-1036342

PATIENT
  Age: 59 Year
  Sex: Female
  Weight: 135.1 kg

DRUGS (21)
  1. VANCOMYCIN [Concomitant]
     Active Substance: VANCOMYCIN
  2. IDARUBICIN HYDROCHLORIDE. [Concomitant]
     Active Substance: IDARUBICIN HYDROCHLORIDE
     Indication: ACUTE MYELOID LEUKAEMIA
     Dates: start: 20180905
  3. COTRIMOXAZOLE [Concomitant]
     Active Substance: SULFAMETHOXAZOLE\TRIMETHOPRIM
  4. PROCHLORPERAZINE. [Concomitant]
     Active Substance: PROCHLORPERAZINE
  5. FOLIC ACID. [Concomitant]
     Active Substance: FOLIC ACID
  6. CIPROFLOXACIN. [Concomitant]
     Active Substance: CIPROFLOXACIN
  7. MEROPENEM. [Concomitant]
     Active Substance: MEROPENEM
  8. AMLODIPINE [Concomitant]
     Active Substance: AMLODIPINE BESYLATE
  9. LINEZOLID. [Concomitant]
     Active Substance: LINEZOLID
  10. AMBISOME [Concomitant]
     Active Substance: AMPHOTERICIN B
  11. ONDANSETRON HYDROCHLORIDE. [Concomitant]
     Active Substance: ONDANSETRON HYDROCHLORIDE
  12. FLUCLOXACILLIN [Concomitant]
     Active Substance: FLUCLOXACILLIN
  13. METOCLOPRAMIDE HYDROCHLORIDE. [Concomitant]
     Active Substance: METOCLOPRAMIDE HYDROCHLORIDE
  14. ACICLOVIR [Concomitant]
     Active Substance: ACYCLOVIR
  15. CYTARABINE. [Concomitant]
     Active Substance: CYTARABINE
     Indication: ACUTE MYELOID LEUKAEMIA
     Dates: start: 20180905
  16. GENTAMICIN. [Concomitant]
     Active Substance: GENTAMICIN
  17. ALLOPURINOL. [Concomitant]
     Active Substance: ALLOPURINOL
  18. AMILORIDE [Concomitant]
     Active Substance: AMILORIDE
  19. FILGRASTIM [Concomitant]
     Active Substance: FILGRASTIM
     Indication: ACUTE MYELOID LEUKAEMIA
     Dates: start: 20180905
  20. POSACONAZOLE [Concomitant]
     Active Substance: POSACONAZOLE
  21. FLUDARABINE [Suspect]
     Active Substance: FLUDARABINE PHOSPHATE
     Indication: ACUTE MYELOID LEUKAEMIA
     Dosage: C1: 30MG/M2 FOR 5 DOSES:70MG X5. C2: 30MG/M2 FOR 1 DOSE ONLY: 67.5MG X1. C2 RESTARTED: 65MG X5.
     Route: 042
     Dates: start: 20180905, end: 20181130

REACTIONS (4)
  - Altered state of consciousness [Fatal]
  - Muscular weakness [Fatal]
  - Myelitis [Fatal]
  - Vision blurred [Fatal]

NARRATIVE: CASE EVENT DATE: 20181217
